FAERS Safety Report 5881876-8 (Version None)
Quarter: 2008Q3

REPORT INFORMATION
  Report Type: 
  Country: None (occurrence: None)
  Receive Date: 20080912
  Receipt Date: 20080716
  Transmission Date: 20090109
  Serious: No
  Sender: FDA-Public Use
  Company Number: US-ABBOTT-08P-163-0464002-00

PATIENT
  Sex: Female
  Weight: 115 kg

DRUGS (8)
  1. HUMIRA [Suspect]
     Indication: RHEUMATOID ARTHRITIS
     Route: 058
     Dates: start: 20080101
  2. METHOTREXATE [Concomitant]
     Indication: RHEUMATOID ARTHRITIS
     Route: 050
     Dates: start: 20080401
  3. HYDROXYCHLOROQUINE [Concomitant]
     Indication: PAIN
     Dosage: 1-2 PILLS DAILY
     Route: 048
     Dates: start: 20080401
  4. FOLIC ACID [Concomitant]
     Indication: VITAMIN SUPPLEMENTATION
     Dosage: THREE PILLS DAILY
     Route: 048
     Dates: start: 20060101
  5. LISINOPRIL [Concomitant]
     Indication: HYPERTENSION
     Route: 048
     Dates: start: 20080401
  6. SIMVASTATIN [Concomitant]
     Indication: BLOOD CHOLESTEROL INCREASED
     Route: 048
  7. RANITIDINE HYDROCHLORIDE [Concomitant]
     Indication: GASTROOESOPHAGEAL REFLUX DISEASE
     Dosage: EVERY NIGHT
     Route: 048
     Dates: start: 20080501
  8. OMEPRAZOLE MAGNESIUM [Concomitant]
     Indication: GASTROOESOPHAGEAL REFLUX DISEASE
     Route: 048
     Dates: start: 20080501

REACTIONS (2)
  - ACCIDENTAL EXPOSURE [None]
  - INJECTION SITE PAIN [None]
